FAERS Safety Report 8928276 (Version 1)
Quarter: 2012Q4

REPORT INFORMATION
  Report Type: 
  Country: BR (occurrence: BR)
  Receive Date: 20121128
  Receipt Date: 20121128
  Transmission Date: 20130627
  Serious: Yes (Other)
  Sender: FDA-Public Use
  Company Number: PHHY2012BR106916

PATIENT
  Sex: Male

DRUGS (1)
  1. DIOVAN HCT [Suspect]
     Indication: BLOOD PRESSURE
     Dosage: 1 DF, daily(at night)
     Route: 048

REACTIONS (4)
  - Myocardial infarction [Recovering/Resolving]
  - Cardiomegaly [Recovering/Resolving]
  - Pleural effusion [Recovering/Resolving]
  - Cardiac output decreased [Recovering/Resolving]
